FAERS Safety Report 11269985 (Version 1)
Quarter: 2015Q3

REPORT INFORMATION
  Report Type: Spontaneous
  Country: NL (occurrence: NL)
  Receive Date: 20150714
  Receipt Date: 20150714
  Transmission Date: 20151125
  Serious: Yes (Death)
  Sender: FDA-Public Use
  Company Number: NL-SA-2015SA100739

PATIENT
  Age: 65 Year
  Sex: Male

DRUGS (2)
  1. OXALIPLATIN. [Interacting]
     Active Substance: OXALIPLATIN
     Indication: COLON CANCER
     Route: 065
  2. CAPECITABINE. [Suspect]
     Active Substance: CAPECITABINE
     Indication: COLON CANCER
     Route: 065

REACTIONS (3)
  - Sepsis [Fatal]
  - Intestinal ischaemia [Fatal]
  - Drug interaction [Fatal]
